FAERS Safety Report 7916971-2 (Version None)
Quarter: 2011Q4

REPORT INFORMATION
  Report Type: 
  Country: None (occurrence: None)
  Receive Date: 20111116
  Receipt Date: 20111116
  Transmission Date: 20120403
  Serious: Yes (Death, Life-Threatening, Hospitalization, Disabling, Congenital Anomaly, Other)
  Sender: FDA-Public Use
  Company Number: None

PATIENT
  Age: 24 Year
  Sex: Female
  Weight: 54.431 kg

DRUGS (2)
  1. AVIANE-21 [Suspect]
     Indication: ACNE
     Dosage: 1 PILL
     Route: 048
     Dates: start: 20111001, end: 20111014
  2. AVIANE-21 [Suspect]
     Indication: CONTRACEPTION
     Dosage: 1 PILL
     Route: 048
     Dates: start: 20111001, end: 20111014

REACTIONS (2)
  - BLOOD PRESSURE DECREASED [None]
  - MENORRHAGIA [None]
